FAERS Safety Report 6474556-1 (Version None)
Quarter: 2009Q4

REPORT INFORMATION
  Report Type: 
  Country: None (occurrence: None)
  Receive Date: 20091120
  Receipt Date: 20091111
  Transmission Date: 20100525
  Serious: Yes (Hospitalization, Other)
  Sender: FDA-Public Use
  Company Number: THYM-1001120

PATIENT
  Age: 62 Year
  Sex: Male
  Weight: 88 kg

DRUGS (10)
  1. THYMOGLOBULIN [Suspect]
     Indication: RENAL TRANSPLANT
     Dosage: 100 MG, QD, INTRAVENOUS, 75 MG, QD, INTRAVENOUS
     Route: 042
     Dates: start: 20090701, end: 20090701
  2. THYMOGLOBULIN [Suspect]
     Indication: RENAL TRANSPLANT
     Dosage: 100 MG, QD, INTRAVENOUS, 75 MG, QD, INTRAVENOUS
     Route: 042
     Dates: start: 20090702, end: 20090702
  3. OMEPRAZOLE [Concomitant]
  4. CEFTRIAXONE [Concomitant]
  5. AMPICILINA SULBACTAM (AMPICILLIN SODIUM, SULBACTAM SODIUM) [Concomitant]
  6. FRAGMIN [Concomitant]
  7. GANCICLOVIR [Concomitant]
  8. STEROID [Concomitant]
  9. ESOMEPRAZOLE SODIUM (ESOMEPRAZOLE SODIUM) [Concomitant]
  10. METHYLPREDNISOLONE [Concomitant]

REACTIONS (5)
  - HAEMOLYSIS [None]
  - KIDNEY TRANSPLANT REJECTION [None]
  - LEUKOPENIA [None]
  - LIVER FUNCTION TEST ABNORMAL [None]
  - THROMBOCYTOPENIA [None]
